FAERS Safety Report 13986235 (Version 17)
Quarter: 2022Q3

REPORT INFORMATION
  Report Type: Spontaneous
  Country: GB (occurrence: GB)
  Receive Date: 20170919
  Receipt Date: 20220927
  Transmission Date: 20221026
  Serious: Yes (Death, Other)
  Sender: FDA-Public Use
  Company Number: GB-TEVA-801034ACC

PATIENT
  Age: 44 Year
  Sex: Female

DRUGS (9)
  1. ACETAMINOPHEN [Suspect]
     Active Substance: ACETAMINOPHEN
     Indication: Pain
     Dosage: 28 DOSAGE FORM, ONCE A DAY
     Route: 048
  2. ACETAMINOPHEN [Suspect]
     Active Substance: ACETAMINOPHEN
     Dosage: ONCE A DAY
     Route: 048
     Dates: start: 20161014, end: 20161014
  3. PREGABALIN [Suspect]
     Active Substance: PREGABALIN
     Indication: Product used for unknown indication
     Dosage: 3 DOSAGE FORM, ONCE A DAY (TOTAL)
     Route: 065
     Dates: start: 20161015, end: 20161015
  4. ZOPICLONE [Suspect]
     Active Substance: ZOPICLONE
     Indication: Sleep disorder
     Dosage: 14 DOSAGE FORM, FOR TWO WEEKS
     Route: 048
  5. COCODAMOL [Suspect]
     Active Substance: ACETAMINOPHEN\CODEINE PHOSPHATE
     Indication: Analgesic therapy
     Dosage: 28 DOSAGE FORM, ONCE A DAY
     Route: 048
  6. COCODAMOL [Suspect]
     Active Substance: ACETAMINOPHEN\CODEINE PHOSPHATE
     Indication: Pain
  7. MORPHINE [Suspect]
     Active Substance: MORPHINE
     Indication: Product used for unknown indication
     Dosage: 1 TOTAL (6 OR 7 TABLETS )
     Route: 065
     Dates: start: 20161014, end: 20161014
  8. ACETAMINOPHEN\CODEINE PHOSPHATE [Suspect]
     Active Substance: ACETAMINOPHEN\CODEINE PHOSPHATE
     Indication: Pain
     Dosage: UNK
     Route: 048
  9. ACETAMINOPHEN\CODEINE PHOSPHATE [Suspect]
     Active Substance: ACETAMINOPHEN\CODEINE PHOSPHATE
     Dosage: 28 DOSAGE FORM, ONCE A DAY (112 TABLETS FOR 2 WEEKS)
     Route: 048

REACTIONS (11)
  - Vision blurred [Fatal]
  - Pneumonia [Fatal]
  - Dysarthria [Fatal]
  - Eye pain [Fatal]
  - Gait disturbance [Fatal]
  - Toxicity to various agents [Fatal]
  - Accidental overdose [Fatal]
  - Intentional product misuse [Fatal]
  - Prescription drug used without a prescription [Fatal]
  - Drug abuse [Fatal]
  - Drug diversion [Fatal]

NARRATIVE: CASE EVENT DATE: 20161001
